FAERS Safety Report 8177366-2 (Version None)
Quarter: 2012Q1

REPORT INFORMATION
  Report Type: 
  Country: None (occurrence: None)
  Receive Date: 20120126
  Receipt Date: 20111109
  Transmission Date: 20120608
  Serious: No
  Sender: FDA-Public Use
  Company Number: PHEH2011US009584

PATIENT

DRUGS (2)
  1. AFINITOR [Suspect]
     Indication: RENAL CELL CARCINOMA
     Dosage: ORAL
     Route: 048
     Dates: start: 20111021
  2. RADIATION (NO INGREDIENTS/SUBSTANCES) [Suspect]

REACTIONS (1)
  - OESOPHAGITIS [None]
